FAERS Safety Report 22278906 (Version 2)
Quarter: 2023Q2

REPORT INFORMATION
  Report Type: Report from Study
  Country: US (occurrence: US)
  Receive Date: 20230503
  Receipt Date: 20230602
  Transmission Date: 20230722
  Serious: Yes (Other)
  Sender: FDA-Public Use
  Company Number: US-TAKEDA-2022TUS017303

PATIENT
  Age: 49 Year
  Sex: Female

DRUGS (1)
  1. HUMAN IMMUNOGLOBULIN G\HYALURONIDASE RECOMBINANT HUMAN [Suspect]
     Active Substance: HUMAN IMMUNOGLOBULIN G\HYALURONIDASE RECOMBINANT HUMAN
     Indication: Selective IgG subclass deficiency
     Dosage: UNK
     Route: 065

REACTIONS (11)
  - Thrombosis [Unknown]
  - Infection [Unknown]
  - Urinary tract infection [Unknown]
  - Contusion [Unknown]
  - Eye infection [Unknown]
  - Sinusitis [Unknown]
  - COVID-19 [Unknown]
  - Insurance issue [Unknown]
  - Vertigo [Unknown]
  - Swelling face [Unknown]
  - Arthralgia [Unknown]

NARRATIVE: CASE EVENT DATE: 20230126
